FAERS Safety Report 5352844-X (Version None)
Quarter: 2007Q2

REPORT INFORMATION
  Report Type: 
  Country: None (occurrence: None)
  Receive Date: 20070611
  Receipt Date: 20070530
  Transmission Date: 20071010
  Serious: Yes (Other)
  Sender: FDA-Public Use
  Company Number: US-ELI_LILLY_AND_COMPANY-US200701005458

PATIENT
  Age: 18 Year
  Sex: Female

DRUGS (5)
  1. ZYPREXA [Suspect]
     Indication: BIPOLAR DISORDER
     Dosage: 10 MG, UNK
  2. VALPROATE BISMUTH [Concomitant]
  3. SEROQUEL [Concomitant]
  4. LAMOTRIGINE [Concomitant]
  5. UNKNOWN PRODUCT [Suspect]

REACTIONS (3)
  - HYPERSENSITIVITY [None]
  - MIXED HEPATOCELLULAR-CHOLESTATIC INJURY [None]
  - RASH MACULAR [None]
